FAERS Safety Report 6892062-7 (Version None)
Quarter: 2010Q3

REPORT INFORMATION
  Report Type: 
  Country: None (occurrence: None)
  Receive Date: 20100731
  Receipt Date: 20080129
  Transmission Date: 20110219
  Serious: No
  Sender: FDA-Public Use
  Company Number: US-PFIZER INC-2007096571

PATIENT
  Age: 47 Year
  Sex: Male

DRUGS (4)
  1. CAVERJECT [Suspect]
     Indication: ERECTILE DYSFUNCTION
     Route: 011
     Dates: start: 20071013
  2. ALTACE [Concomitant]
  3. PLAVIX [Concomitant]
  4. GLYBURIDE [Concomitant]

REACTIONS (1)
  - DRUG INEFFECTIVE [None]
